FAERS Safety Report 7025131-1 (Version None)
Quarter: 2010Q4

REPORT INFORMATION
  Report Type: 
  Country: None (occurrence: None)
  Receive Date: 20101001
  Receipt Date: 20100921
  Transmission Date: 20110411
  Serious: Yes (Other)
  Sender: FDA-Public Use
  Company Number: DE-PFIZER INC-2010119301

PATIENT
  Sex: Male

DRUGS (2)
  1. LYRICA [Suspect]
     Indication: PAIN
     Dosage: 75 MG, 3X/DAY
     Dates: start: 20100701
  2. LYRICA [Suspect]
     Dosage: 75 MG, 1X/DAY
     Dates: start: 20100919

REACTIONS (7)
  - DEPRESSED LEVEL OF CONSCIOUSNESS [None]
  - DISTURBANCE IN ATTENTION [None]
  - GAIT DISTURBANCE [None]
  - SKIN REACTION [None]
  - SLEEP DISORDER [None]
  - SOMNOLENCE [None]
  - WITHDRAWAL SYNDROME [None]
